FAERS Safety Report 15982811 (Version 4)
Quarter: 2019Q4

REPORT INFORMATION
  Report Type: Report from Study
  Country: KR (occurrence: KR)
  Receive Date: 20190219
  Receipt Date: 20191216
  Transmission Date: 20200122
  Serious: Yes (Hospitalization)
  Sender: FDA-Public Use
  Company Number: KR-PFIZER INC-2019062858

PATIENT
  Age: 63 Year
  Sex: Male
  Weight: 70.8 kg

DRUGS (27)
  1. PEGILODECAKIN [Suspect]
     Active Substance: PEGILODECAKIN
     Indication: PANCREATIC CARCINOMA METASTATIC
     Dosage: 0.4 MG, CYCLICAL
     Route: 058
     Dates: start: 20180207, end: 20180330
  2. OLMESARTAN MEDOXOMIL. [Concomitant]
     Active Substance: OLMESARTAN MEDOXOMIL
     Dosage: UNK
     Dates: start: 20180221
  3. MAGNESIUM OXIDE. [Concomitant]
     Active Substance: MAGNESIUM OXIDE
     Dosage: UNK
     Dates: start: 20180328
  4. ONDANSETRON [Concomitant]
     Active Substance: ONDANSETRON
     Dosage: UNK
     Dates: start: 20180302, end: 20190328
  5. GLICLAZIDE [Concomitant]
     Active Substance: GLICLAZIDE
     Dosage: UNK
     Dates: start: 20180314
  6. LORAZEPAM. [Concomitant]
     Active Substance: LORAZEPAM
     Dosage: UNK
     Dates: start: 20180118
  7. PANCREATIN [Concomitant]
     Active Substance: PANCRELIPASE
     Dosage: UNK
     Dates: start: 20180207
  8. CAMOSTAT MESILATE [Concomitant]
     Active Substance: CAMOSTAT MESYLATE
     Dosage: UNK
     Dates: start: 20180207
  9. TRESTAN [CYANOCOBALAMIN]/00056201 [Concomitant]
     Dosage: UNK
     Dates: start: 20180314
  10. NALOXONE/OXYCODONE [Concomitant]
     Active Substance: NALOXONE HYDROCHLORIDE\OXYCODONE HYDROCHLORIDE
     Dosage: UNK
     Dates: start: 20171015
  11. SIMVASTATIN. [Concomitant]
     Active Substance: SIMVASTATIN
     Dosage: UNK
  12. NATURES WAY PRIMADOPHILUS BIFIDUS [Concomitant]
     Dosage: UNK
     Dates: start: 20180302, end: 20180305
  13. CALCIUM FOLINATE [Suspect]
     Active Substance: LEUCOVORIN CALCIUM
     Indication: PANCREATIC CARCINOMA METASTATIC
     Dosage: 730 MG, CYCLIC
     Route: 042
     Dates: start: 20180207
  14. FLUOROURACIL. [Suspect]
     Active Substance: FLUOROURACIL
     Dosage: 4400 MG, CYCLICAL, PUMP
     Route: 042
     Dates: start: 20180207, end: 20180328
  15. METFORMIN [Concomitant]
     Active Substance: METFORMIN HYDROCHLORIDE
     Dosage: UNK
  16. SITAGLIPTIN [Concomitant]
     Active Substance: SITAGLIPTIN
     Dosage: UNK
     Dates: start: 20180221
  17. METOCLOPRAMIDE HCL [Concomitant]
     Active Substance: METOCLOPRAMIDE HYDROCHLORIDE
     Dosage: UNK
     Dates: start: 20180302, end: 20180404
  18. PENIRAMIN [Concomitant]
     Dosage: UNK
     Dates: start: 20180303, end: 20180404
  19. ZOLPIDEM [Concomitant]
     Active Substance: ZOLPIDEM TARTRATE
     Dosage: UNK
     Dates: start: 20180221
  20. FLUOROURACIL. [Suspect]
     Active Substance: FLUOROURACIL
     Indication: PANCREATIC CARCINOMA METASTATIC
     Dosage: 730 MG, CYCLICAL, BOLUS
     Route: 040
     Dates: start: 20180207, end: 20180328
  21. LOSARTAN POTASSIUM. [Concomitant]
     Active Substance: LOSARTAN POTASSIUM
     Dosage: UNK
  22. GRANISETRON HCL [Concomitant]
     Dosage: UNK
     Dates: start: 20170805
  23. PALONOSETRON. [Concomitant]
     Active Substance: PALONOSETRON HYDROCHLORIDE
     Dosage: UNK
     Dates: start: 20180314, end: 20180328
  24. APREPITANT. [Concomitant]
     Active Substance: APREPITANT
     Dosage: UNK
     Dates: start: 20180314, end: 20180330
  25. DEXTROSE INJECTION [Concomitant]
     Active Substance: DEXTROSE
     Dosage: UNK
     Dates: start: 20180314, end: 20180328
  26. OXALIPLATIN. [Suspect]
     Active Substance: OXALIPLATIN
     Indication: PANCREATIC CARCINOMA METASTATIC
     Dosage: 150 MG, CYCLICAL
     Route: 042
     Dates: start: 20180207
  27. ENCOVER [Concomitant]
     Dosage: UNK
     Dates: start: 20180123, end: 201802

REACTIONS (1)
  - Infusion related reaction [Recovered/Resolved]

NARRATIVE: CASE EVENT DATE: 20180328
